FAERS Safety Report 5342741-8 (Version None)
Quarter: 2007Q2

REPORT INFORMATION
  Report Type: 
  Country: None (occurrence: None)
  Receive Date: 20070601
  Receipt Date: 20070530
  Transmission Date: 20071010
  Serious: Yes (Other)
  Sender: FDA-Public Use
  Company Number: US-GILEAD-2007-0012262

PATIENT
  Sex: Female
  Weight: 40.86 kg

DRUGS (1)
  1. HEPSERA [Suspect]
     Indication: HEPATITIS B
     Route: 048

REACTIONS (1)
  - RENAL FAILURE [None]
